FAERS Safety Report 18452663 (Version 1)
Quarter: 2020Q4

REPORT INFORMATION
  Report Type: Spontaneous
  Country: CN (occurrence: CN)
  Receive Date: 20201102
  Receipt Date: 20201102
  Transmission Date: 20210114
  Serious: Yes (Other)
  Sender: FDA-Public Use
  Company Number: CN-FRESENIUS KABI-FK202011491

PATIENT
  Age: 57 Year
  Sex: Female
  Weight: 58 kg

DRUGS (12)
  1. NOVAMIN (NOT SPECIFIED) (AMINO ACIDS) [Suspect]
     Active Substance: AMINO ACIDS
     Indication: PARENTERAL NUTRITION
     Dosage: 750ML QD
     Route: 041
     Dates: start: 20201014, end: 20201020
  2. POTASSIUM CHLORIDE. [Concomitant]
     Active Substance: POTASSIUM CHLORIDE
     Indication: PARENTERAL NUTRITION
     Dosage: 30ML QD
     Route: 041
     Dates: start: 20201014, end: 20201020
  3. SODIUM CHLORIDE. [Concomitant]
     Active Substance: SODIUM CHLORIDE
     Indication: PARENTERAL NUTRITION
     Dosage: 20ML QD
     Route: 041
     Dates: start: 20201014, end: 20201020
  4. MAGNESIUM SULFATE. [Concomitant]
     Active Substance: MAGNESIUM SULFATE
     Indication: PARENTERAL NUTRITION
     Dosage: 2.5G QD
     Route: 041
     Dates: start: 20201014, end: 20201020
  5. SORBITOL/MINERALS NOS/ELECTROLYTES NOS [Concomitant]
     Indication: PARENTERAL NUTRITION
     Dosage: 10ML QD
     Route: 041
     Dates: start: 20201014, end: 20201020
  6. GLUCOSE [Concomitant]
     Active Substance: DEXTROSE
     Indication: PARENTERAL NUTRITION
     Dosage: 150ML QD
     Route: 041
     Dates: start: 20201014, end: 20201020
  7. CALCIUM GLUCONATE. [Concomitant]
     Active Substance: CALCIUM GLUCONATE
     Indication: PARENTERAL NUTRITION
     Dosage: 10ML QD
     Route: 041
     Dates: start: 20201014, end: 20201020
  8. LIPOVENOES MCT (NOT SPECIFIED) [Suspect]
     Active Substance: EGG PHOSPHOLIPIDS\GLYCERIN\MEDIUM-CHAIN TRIGLYCERIDES\SOYBEAN OIL
     Indication: PARENTERAL NUTRITION
     Dosage: 250ML QD
     Route: 041
     Dates: start: 20201014, end: 20201020
  9. ASCORBIC ACID/PYRIDOXINE HYDROCHLORIDE/BIOTIN/FOLIC ACID/CYANOCOBALAMIN/RIBOFLAVIN/NICOTINAMIDE/CALC [Concomitant]
     Indication: PARENTERAL NUTRITION
     Dosage: 467MG QD
     Route: 041
     Dates: start: 20201014, end: 20201020
  10. VITAMINS NOS [Concomitant]
     Active Substance: VITAMINS
     Indication: PARENTERAL NUTRITION
     Dosage: 10ML QD
     Route: 041
     Dates: start: 20201014, end: 20201020
  11. GLUCOSE [Concomitant]
     Active Substance: DEXTROSE
     Indication: PARENTERAL NUTRITION
     Dosage: 500ML QD
     Route: 041
     Dates: start: 20201014, end: 20201020
  12. INSULIN HUMAN [Concomitant]
     Active Substance: INSULIN HUMAN
     Indication: PARENTERAL NUTRITION
     Dosage: 15U QD
     Route: 041
     Dates: start: 20201014, end: 20201020

REACTIONS (5)
  - Pruritus [Recovering/Resolving]
  - Urticaria [Recovering/Resolving]
  - Chills [Recovering/Resolving]
  - Pyrexia [Recovered/Resolved]
  - Eye swelling [Recovering/Resolving]

NARRATIVE: CASE EVENT DATE: 20201020
